FAERS Safety Report 4914085-7 (Version None)
Quarter: 2006Q1

REPORT INFORMATION
  Report Type: 
  Country: None (occurrence: None)
  Receive Date: 20060113
  Receipt Date: 20051116
  Transmission Date: 20060701
  Serious: No
  Sender: FDA-Public Use
  Company Number: 2005SP004032

PATIENT
  Age: 54 Year
  Sex: Female
  Weight: 80.7403 kg

DRUGS (3)
  1. LUNESTA [Suspect]
     Indication: INITIAL INSOMNIA
     Dosage: 2 MG, HS, ORAL
     Route: 048
     Dates: start: 20051101, end: 20051104
  2. ALTACE [Concomitant]
  3. CRESTOR [Concomitant]

REACTIONS (2)
  - DYSGEUSIA [None]
  - VOMITING [None]
